FAERS Safety Report 5853236-7 (Version None)
Quarter: 2008Q3

REPORT INFORMATION
  Report Type: 
  Country: None (occurrence: None)
  Receive Date: 20080820
  Receipt Date: 20080812
  Transmission Date: 20090109
  Serious: Yes (Hospitalization)
  Sender: FDA-Public Use
  Company Number: 2008SP001699

PATIENT
  Age: 59 Year
  Sex: Female

DRUGS (2)
  1. LUNESTA [Suspect]
     Indication: INSOMNIA
     Dosage: 2 MG; HS; ORAL
     Route: 048
  2. AMBIEN [Concomitant]

REACTIONS (16)
  - ANXIETY [None]
  - ASTHENIA [None]
  - CHEST DISCOMFORT [None]
  - DECREASED APPETITE [None]
  - DIARRHOEA [None]
  - DRUG EFFECT DECREASED [None]
  - DRUG INEFFECTIVE [None]
  - DYSPNOEA [None]
  - HEAD DISCOMFORT [None]
  - HYPERTENSION [None]
  - HYPERTHYROIDISM [None]
  - MIDDLE INSOMNIA [None]
  - NAUSEA [None]
  - PARAESTHESIA [None]
  - PHARMACEUTICAL PRODUCT COMPLAINT [None]
  - TOXIC NODULAR GOITRE [None]
